FAERS Safety Report 8217652-0 (Version None)
Quarter: 2012Q1

REPORT INFORMATION
  Report Type: 
  Country: None (occurrence: None)
  Receive Date: 20120305
  Receipt Date: 20111010
  Transmission Date: 20120608
  Serious: No
  Sender: FDA-Public Use
  Company Number: 1000024565

PATIENT
  Age: 72 Year
  Sex: Male

DRUGS (14)
  1. DALIRESP [Suspect]
     Indication: CHRONIC OBSTRUCTIVE PULMONARY DISEASE
     Dosage: 500 MCG (500 MCG, 1 IN 1 D),ORAL
     Route: 048
     Dates: start: 20110901, end: 20111009
  2. ADVAIR (SERETIDE) (SERETIDE) [Concomitant]
  3. OXYCONTIN (OXYCODONE HYDROCHLORIDE) (OXYCODONE HYDROCHLORIDE) [Concomitant]
  4. LEVEMIR [Concomitant]
  5. PLAVIX (CLOPIDOGREL BISULFATE) (CLOPIDOGREL BISULFATE) [Concomitant]
  6. DIGOXIN [Concomitant]
  7. METFORMIN HCL [Concomitant]
  8. NIASPAN (NICOTINIC ACID) (NICOTINIC ACID) [Concomitant]
  9. SPIRIVA (TIOTROPIUM BROMIDE) (TIOTROPIUM BROMIDE) [Concomitant]
  10. VENTOLIN HFA (SALBUTAMOL SULFATE) (SALBUTAMOL SULFATE) [Concomitant]
  11. RANITIDINE [Concomitant]
  12. GEMFIBROZIL (GEMFIBROZIL) (GEMFIBROZIL) [Concomitant]
  13. CYCLOBENZAPRINE HCL [Concomitant]
  14. HYDROXYZINE [Concomitant]

REACTIONS (7)
  - HEADACHE [None]
  - DIARRHOEA [None]
  - NAUSEA [None]
  - DIZZINESS [None]
  - PAIN IN EXTREMITY [None]
  - WEIGHT DECREASED [None]
  - BACK PAIN [None]
